FAERS Safety Report 5006291-0 (Version None)
Quarter: 2006Q2

REPORT INFORMATION
  Report Type: 
  Country: None (occurrence: None)
  Receive Date: 20060519
  Receipt Date: 20060222
  Transmission Date: 20061013
  Serious: Yes (Other)
  Sender: FDA-Public Use
  Company Number: PHMT2006CA00762

PATIENT
  Age: 1 Day
  Sex: Female
  Weight: 2.312 kg

DRUGS (3)
  1. FEMARA [Suspect]
     Route: 064
  2. ANTIHYPERTENSIVES [Concomitant]
     Route: 064
  3. ALIMENTUM [Concomitant]

REACTIONS (2)
  - COLITIS [None]
  - PREMATURE BABY [None]
